FAERS Safety Report 5624235-5 (Version None)
Quarter: 2008Q1

REPORT INFORMATION
  Report Type: 
  Country: None (occurrence: None)
  Receive Date: 20080213
  Receipt Date: 20080206
  Transmission Date: 20080703
  Serious: Yes (Other)
  Sender: FDA-Public Use
  Company Number: PHHY2008JP00567

PATIENT
  Age: 60 Year
  Sex: Male

DRUGS (2)
  1. NEORAL [Suspect]
     Indication: RENAL TRANSPLANT
     Route: 048
  2. CELLCEPT [Concomitant]
     Indication: RENAL TRANSPLANT
     Route: 048

REACTIONS (2)
  - EXTREMITY NECROSIS [None]
  - PERIPHERAL VASCULAR DISORDER [None]
